FAERS Safety Report 22655538 (Version 3)
Quarter: 2024Q1

REPORT INFORMATION
  Report Type: Spontaneous
  Country: US (occurrence: US)
  Receive Date: 20230629
  Receipt Date: 20240105
  Transmission Date: 20240409
  Serious: No
  Sender: FDA-Public Use
  Company Number: US-PFIZER INC-PV202300112466

PATIENT
  Age: 86 Year
  Sex: Male

DRUGS (2)
  1. RETACRIT [Suspect]
     Active Substance: EPOETIN ALFA-EPBX
     Indication: Nephrogenic anaemia
     Dosage: 40000 IU/ML, WEEKLY (INJECT 40000 UNITS (1ML) SQ ONCE WEEKLY)
     Route: 058
  2. RETACRIT [Suspect]
     Active Substance: EPOETIN ALFA-EPBX
     Indication: Myelodysplastic syndrome

REACTIONS (2)
  - Gait inability [Unknown]
  - Off label use [Unknown]
